FAERS Safety Report 8693898 (Version 2)
Quarter: 2012Q4

REPORT INFORMATION
  Report Type: Spontaneous
  Country: US (occurrence: None)
  Receive Date: 20120713
  Receipt Date: 20121004
  Transmission Date: 20130627
  Serious: Yes (Other)
  Sender: FDA-Public Use
  Company Number: DKLU1082916

PATIENT
  Age: 34 Year
  Sex: Male

DRUGS (3)
  1. SABRIL [Suspect]
     Indication: COMPLEX PARTIAL SEIZURES
     Dosage: 1500 MG MILLIGRAM(S), 2 IN 1 D, ORAL
     Route: 048
     Dates: start: 20110819
  2. KEPPRA [Concomitant]
  3. LYRICA [Concomitant]

REACTIONS (2)
  - Petit mal epilepsy [None]
  - Grand mal convulsion [None]
